FAERS Safety Report 22173983 (Version 1)
Quarter: 2023Q2

REPORT INFORMATION
  Report Type: Spontaneous
  Country: GB (occurrence: GB)
  Receive Date: 20230404
  Receipt Date: 20230404
  Transmission Date: 20230721
  Serious: Yes (Other)
  Sender: FDA-Public Use
  Company Number: None

PATIENT
  Age: 79 Year
  Sex: Male
  Weight: 157 kg

DRUGS (10)
  1. SITAGLIPTIN PHOSPHATE [Suspect]
     Active Substance: SITAGLIPTIN PHOSPHATE
     Dosage: 100 MILLIGRAM, QD
     Route: 048
     Dates: start: 20221207
  2. ALOGLIPTIN [Concomitant]
     Active Substance: ALOGLIPTIN
     Dosage: 1 DOSAGE FORM, QD
     Dates: start: 20230320
  3. AMLODIPINE [Concomitant]
     Active Substance: AMLODIPINE BESYLATE
     Dosage: 1 DOSAGE FORM, QD
     Dates: start: 20220328
  4. DIGOXIN [Concomitant]
     Active Substance: DIGOXIN
     Dosage: 1 DOSAGE FORM, QD
     Dates: start: 20220328
  5. EDOXABAN [Concomitant]
     Active Substance: EDOXABAN
     Dosage: 1 DOSAGE FORM, QD
     Route: 048
     Dates: start: 20221220
  6. FOLIC ACID [Concomitant]
     Active Substance: FOLIC ACID
     Dosage: 1 DOSAGE FORM, QD
     Dates: start: 20220830, end: 20230320
  7. GLICLAZIDE [Concomitant]
     Active Substance: GLICLAZIDE
     Dosage: 2 DOSAGE FORM, BID
     Dates: start: 20220328
  8. HUMULIN L [Concomitant]
     Active Substance: INSULIN HUMAN
     Dates: start: 20220328
  9. LOSARTAN [Concomitant]
     Active Substance: LOSARTAN
     Dosage: 1 DOSAGE FORM, QD
     Dates: start: 20220328
  10. METFORMIN HYDROCHLORIDE [Concomitant]
     Active Substance: METFORMIN HYDROCHLORIDE
     Dosage: 1 DOSAGE FORM, QD
     Dates: start: 20220328

REACTIONS (2)
  - Non-cardiac chest pain [Recovered/Resolved]
  - Pain [Recovered/Resolved]
